FAERS Safety Report 7726822-7 (Version None)
Quarter: 2011Q3

REPORT INFORMATION
  Report Type: 
  Country: None (occurrence: None)
  Receive Date: 20110902
  Receipt Date: 20110829
  Transmission Date: 20111222
  Serious: Yes (Hospitalization)
  Sender: FDA-Public Use
  Company Number: FR-GLAXOSMITHKLINE-B0742848A

PATIENT
  Age: 47 Year
  Sex: Male

DRUGS (3)
  1. METHYLPREDNISOLONE [Concomitant]
  2. ZOVIRAX [Suspect]
     Indication: PROPHYLAXIS
     Route: 048
     Dates: start: 20110419, end: 20110519
  3. CYCLOSPORINE [Suspect]
     Indication: BONE MARROW TRANSPLANT
     Route: 048
     Dates: start: 20110418, end: 20110621

REACTIONS (2)
  - POLYURIA [None]
  - RENAL TUBULAR DISORDER [None]
